FAERS Safety Report 12590354 (Version 1)
Quarter: 2016Q3

REPORT INFORMATION
  Report Type: Report from Study
  Country: US (occurrence: US)
  Receive Date: 20160725
  Receipt Date: 20160725
  Transmission Date: 20161109
  Serious: Yes (Hospitalization)
  Sender: FDA-Public Use
  Company Number: US-BIOGEN-2016BI00268975

PATIENT
  Sex: Male
  Weight: 54.48 kg

DRUGS (1)
  1. AVONEX [Suspect]
     Active Substance: INTERFERON BETA-1A
     Indication: MULTIPLE SCLEROSIS
     Route: 065
     Dates: start: 20150629

REACTIONS (6)
  - Ill-defined disorder [Unknown]
  - Viral infection [Unknown]
  - Influenza like illness [Unknown]
  - Feeding disorder [Unknown]
  - Drug dose omission [Unknown]
  - Vomiting [Unknown]
